FAERS Safety Report 18066643 (Version 42)
Quarter: 2025Q4

REPORT INFORMATION
  Report Type: Report from Study
  Country: US (occurrence: US)
  Receive Date: 20200724
  Receipt Date: 20251004
  Transmission Date: 20260118
  Serious: Yes (Hospitalization, Other)
  Sender: TAKEDA
  Company Number: US-SHIRE-US202017854

PATIENT
  Age: 61 Year
  Sex: Female
  Weight: 102 kg

DRUGS (54)
  1. HUMAN IMMUNOGLOBULIN G [Suspect]
     Active Substance: HUMAN IMMUNOGLOBULIN G
     Indication: Immunodeficiency common variable
     Dosage: 16 GRAM, 1/WEEK
     Dates: start: 20181025
  2. HUMAN IMMUNOGLOBULIN G [Suspect]
     Active Substance: HUMAN IMMUNOGLOBULIN G
     Indication: Primary immunodeficiency syndrome
     Dosage: 16 GRAM, 1/WEEK
  3. HUMAN IMMUNOGLOBULIN G [Suspect]
     Active Substance: HUMAN IMMUNOGLOBULIN G
     Dosage: 16 GRAM, 1/WEEK
     Dates: start: 20190128
  4. HUMAN IMMUNOGLOBULIN G [Suspect]
     Active Substance: HUMAN IMMUNOGLOBULIN G
     Dosage: 16 GRAM, 1/WEEK
  5. HUMAN IMMUNOGLOBULIN G [Suspect]
     Active Substance: HUMAN IMMUNOGLOBULIN G
     Dosage: 16 GRAM, 1/WEEK
  6. HUMAN IMMUNOGLOBULIN G [Suspect]
     Active Substance: HUMAN IMMUNOGLOBULIN G
     Dosage: UNK
  7. VARICELLA-ZOSTER VIRUS STRAIN OKA/MERCK LIVE ANTIGEN [Suspect]
     Active Substance: VARICELLA-ZOSTER VIRUS STRAIN OKA/MERCK LIVE ANTIGEN
     Indication: Product used for unknown indication
     Dosage: UNK
  8. ACETAMINOPHEN [Concomitant]
     Active Substance: ACETAMINOPHEN
     Dosage: UNK
  9. DIPHENHYDRAMINE [Concomitant]
     Active Substance: DIPHENHYDRAMINE
     Dosage: UNK
  10. EPINEPHRINE [Concomitant]
     Active Substance: EPINEPHRINE
     Dosage: UNK
  11. Lmx [Concomitant]
     Dosage: UNK
  12. FLECAINIDE ACETATE [Concomitant]
     Active Substance: FLECAINIDE ACETATE
     Dosage: UNK
  13. LISINOPRIL [Concomitant]
     Active Substance: LISINOPRIL
     Dosage: UNK
  14. CEPHALEXIN [Concomitant]
     Active Substance: CEPHALEXIN
     Dosage: UNK
  15. DICYCLOMINE HYDROCHLORIDE [Concomitant]
     Active Substance: DICYCLOMINE HYDROCHLORIDE
     Dosage: UNK
  16. ALIGN [Concomitant]
     Active Substance: BIFIDOBACTERIUM LONGUM SUBSP. INFANTIS
     Dosage: UNK
  17. MONTELUKAST [Concomitant]
     Active Substance: MONTELUKAST
     Dosage: UNK
  18. MORPHINE SULFATE [Concomitant]
     Active Substance: MORPHINE SULFATE
     Dosage: UNK
  19. SENNA [Concomitant]
     Active Substance: SENNOSIDES
     Dosage: UNK
  20. DALIRESP [Concomitant]
     Active Substance: ROFLUMILAST
     Dosage: UNK
  21. FLUTICASONE PROPIONATE [Concomitant]
     Active Substance: FLUTICASONE PROPIONATE
     Dosage: UNK
  22. PREDNISONE [Concomitant]
     Active Substance: PREDNISONE
     Dosage: UNK
  23. SPIRIVA [Concomitant]
     Active Substance: TIOTROPIUM BROMIDE MONOHYDRATE
     Dosage: UNK
  24. OXYCODONE HYDROCHLORIDE [Concomitant]
     Active Substance: OXYCODONE HYDROCHLORIDE
     Dosage: UNK
  25. MELATONIN [Concomitant]
     Active Substance: MELATONIN
     Dosage: UNK
  26. MELOXICAM [Concomitant]
     Active Substance: MELOXICAM
     Dosage: UNK
  27. LASIX [Concomitant]
     Active Substance: FUROSEMIDE
     Dosage: UNK
  28. XARELTO [Concomitant]
     Active Substance: RIVAROXABAN
     Dosage: UNK
  29. MUCINEX [Concomitant]
     Active Substance: GUAIFENESIN
     Dosage: UNK
  30. TRAMADOL HCL [Concomitant]
     Active Substance: TRAMADOL HYDROCHLORIDE
     Dosage: UNK
  31. ALBUTEROL [Concomitant]
     Active Substance: ALBUTEROL
     Dosage: UNK
  32. TEMAZEPAM [Concomitant]
     Active Substance: TEMAZEPAM
     Dosage: UNK
  33. DILAUDID [Concomitant]
     Active Substance: HYDROMORPHONE HYDROCHLORIDE
     Dosage: UNK
  34. PROTONIX [Concomitant]
     Active Substance: PANTOPRAZOLE SODIUM
     Dosage: UNK
  35. REMERON [Concomitant]
     Active Substance: MIRTAZAPINE
     Dosage: UNK
  36. DULOXETINE HYDROCHLORIDE [Concomitant]
     Active Substance: DULOXETINE HYDROCHLORIDE
     Dosage: UNK
  37. SYMBICORT [Concomitant]
     Active Substance: BUDESONIDE\FORMOTEROL FUMARATE DIHYDRATE
     Dosage: UNK
  38. LORAZEPAM [Concomitant]
     Active Substance: LORAZEPAM
     Dosage: UNK
  39. CETRIZINE HCL [Concomitant]
     Dosage: UNK
  40. LINZESS [Concomitant]
     Active Substance: LINACLOTIDE
     Dosage: UNK
  41. PRIMIDONE [Concomitant]
     Active Substance: PRIMIDONE
     Dosage: UNK
  42. ASPIRIN [Concomitant]
     Active Substance: ASPIRIN
     Dosage: UNK
  43. REQUIP [Concomitant]
     Active Substance: ROPINIROLE HYDROCHLORIDE
     Dosage: UNK
  44. TOPROL XL [Concomitant]
     Active Substance: METOPROLOL SUCCINATE
     Dosage: UNK
  45. STOOL SOFTENER (DOCUSATE) [Concomitant]
     Active Substance: DOCUSATE
     Dosage: UNK
  46. MECLIZINE HYDROCHLORIDE [Concomitant]
     Active Substance: MECLIZINE HYDROCHLORIDE
     Dosage: UNK
  47. METFORMIN [Concomitant]
     Active Substance: METFORMIN HYDROCHLORIDE
     Dosage: UNK
  48. FLONASE [Concomitant]
     Active Substance: FLUTICASONE PROPIONATE
     Dosage: UNK
  49. VENTOLIN [Concomitant]
     Active Substance: ALBUTEROL SULFATE
     Dosage: UNK
  50. METFORMIN HYDROCHLORIDE [Concomitant]
     Active Substance: METFORMIN HYDROCHLORIDE
     Dosage: UNK
  51. MONTELUKAST SODIUM [Concomitant]
     Active Substance: MONTELUKAST SODIUM
     Dosage: UNK
  52. CETIRIZINE HCL [Concomitant]
     Active Substance: CETIRIZINE HYDROCHLORIDE
     Dosage: UNK
  53. DIPHENHYDRAMINE HYDROCHLORIDE [Concomitant]
     Active Substance: DIPHENHYDRAMINE HYDROCHLORIDE
     Dosage: UNK
  54. ALBUTEROL SULFATE [Concomitant]
     Active Substance: ALBUTEROL SULFATE
     Dosage: UNK

REACTIONS (56)
  - Cellulitis [Unknown]
  - Lymphoma [Unknown]
  - Pseudomonas infection [Unknown]
  - Pulmonary vascular disorder [Unknown]
  - Skin cancer [Unknown]
  - Myelofibrosis [Unknown]
  - COVID-19 [Unknown]
  - Pleural effusion [Unknown]
  - Pericardial effusion [Unknown]
  - Pneumonia [Unknown]
  - Aspiration [Unknown]
  - Pneumonia fungal [Unknown]
  - Nephrolithiasis [Unknown]
  - Peripheral swelling [Not Recovered/Not Resolved]
  - Drug level decreased [Unknown]
  - Somnambulism [Unknown]
  - Eye pruritus [Unknown]
  - White blood cell count increased [Unknown]
  - Lymphoedema [Unknown]
  - Abdominal hernia [Unknown]
  - Infusion site discharge [Unknown]
  - Waldenstrom^s macroglobulinaemia [Unknown]
  - Asthma [Unknown]
  - Hypoxia [Unknown]
  - Thrombocytopenia [Unknown]
  - Abdominal pain upper [Unknown]
  - Infusion site pruritus [Unknown]
  - Infusion site swelling [Unknown]
  - Erythema [Unknown]
  - Dyspnoea [Unknown]
  - Infusion site pain [Unknown]
  - Fatigue [Unknown]
  - Infection [Recovering/Resolving]
  - Blister rupture [Unknown]
  - Ear haemorrhage [Unknown]
  - Weight increased [Unknown]
  - Thyroid cyst [Unknown]
  - Urinary tract infection [Unknown]
  - Rib fracture [Unknown]
  - Localised infection [Not Recovered/Not Resolved]
  - Skin ulcer [Unknown]
  - Post procedural discomfort [Unknown]
  - Infusion site haemorrhage [Unknown]
  - Dysplasia [Unknown]
  - Product dose omission issue [Unknown]
  - Lymphocyte count abnormal [Unknown]
  - Lipoma [Unknown]
  - Blister [Unknown]
  - Sluggishness [Unknown]
  - Blood iron decreased [Unknown]
  - Blood immunoglobulin M increased [Unknown]
  - Anaemia [Unknown]
  - Pain in extremity [Unknown]
  - Back pain [Unknown]
  - Blood glucose decreased [Unknown]
  - Tremor [Unknown]

NARRATIVE: CASE EVENT DATE: 20200924
